FAERS Safety Report 10201667 (Version 2)
Quarter: 2014Q2

REPORT INFORMATION
  Report Type: Spontaneous
  Country: DK (occurrence: DK)
  Receive Date: 20140528
  Receipt Date: 20140606
  Transmission Date: 20141212
  Serious: Yes (Hospitalization)
  Sender: FDA-Public Use
  Company Number: DK-TEVA-482928ISR

PATIENT
  Age: 41 Year
  Sex: Female

DRUGS (9)
  1. FLUCONAZOLE [Suspect]
     Indication: ORAL CANDIDIASIS
     Dosage: 100 MILLIGRAM DAILY;
     Route: 065
  2. VINCRISTINE [Interacting]
     Indication: EWING^S SARCOMA
     Route: 065
  3. DOXORUBICIN [Concomitant]
     Indication: EWING^S SARCOMA
     Route: 065
  4. DOXORUBICIN [Concomitant]
     Route: 065
  5. ETOPOSIDE [Concomitant]
     Indication: EWING^S SARCOMA
     Route: 065
  6. ETOPOSIDE [Concomitant]
     Route: 065
  7. IFOSFAMIDE [Concomitant]
     Indication: EWING^S SARCOMA
     Route: 065
  8. MIRTAZAPINE [Concomitant]
     Indication: PRODUCT USED FOR UNKNOWN INDICATION
     Route: 065
  9. PREDNISOLONE [Concomitant]
     Indication: PRODUCT USED FOR UNKNOWN INDICATION
     Route: 065

REACTIONS (5)
  - Drug interaction [Recovered/Resolved]
  - Paraesthesia [Unknown]
  - Motor dysfunction [Unknown]
  - Paraesthesia [Unknown]
  - Motor dysfunction [Unknown]
